FAERS Safety Report 7454672-8 (Version None)
Quarter: 2011Q2

REPORT INFORMATION
  Report Type: 
  Country: None (occurrence: None)
  Receive Date: 20110425
  Receipt Date: 20110412
  Transmission Date: 20111010
  Serious: Yes (Hospitalization)
  Sender: FDA-Public Use
  Company Number: 016771

PATIENT
  Sex: Male
  Weight: 89 kg

DRUGS (8)
  1. AMIODARONE HCL [Concomitant]
  2. PERCOCET [Concomitant]
  3. CIMZIA [Suspect]
     Indication: CROHN'S DISEASE
     Dosage: SEE IMAGE
     Route: 058
     Dates: end: 20100712
  4. CIMZIA [Suspect]
     Indication: CROHN'S DISEASE
     Dosage: SEE IMAGE
     Route: 058
     Dates: start: 20081201
  5. PREDNISONE [Concomitant]
  6. OLANZAPINE [Concomitant]
  7. ASACOL [Concomitant]
  8. SEROQUEL [Concomitant]

REACTIONS (5)
  - CONDITION AGGRAVATED [None]
  - ATRIAL FIBRILLATION [None]
  - INTESTINAL PERFORATION [None]
  - ABDOMINAL ABSCESS [None]
  - CROHN'S DISEASE [None]
